FAERS Safety Report 8242158-2 (Version None)
Quarter: 2012Q1

REPORT INFORMATION
  Report Type: 
  Country: None (occurrence: None)
  Receive Date: 20120314
  Receipt Date: 20110722
  Transmission Date: 20120608
  Serious: No
  Sender: FDA-Public Use
  Company Number: PHHY2011US66775

PATIENT
  Age: 31 Year
  Sex: Female

DRUGS (6)
  1. LISINOPRIL/HCTZ (HYDROCHLOROTHIAZIDE, LISINOPRIL) [Concomitant]
  2. CALCIUM CARBONATE [Concomitant]
  3. VITAMIN D (EROGOCALCIFEROL) [Concomitant]
  4. FANAPT [Suspect]
  5. METHYLPHENIDATE [Concomitant]
  6. VERAPAMIL [Concomitant]

REACTIONS (6)
  - NAUSEA [None]
  - SOMNOLENCE [None]
  - VISION BLURRED [None]
  - GAIT DISTURBANCE [None]
  - DIZZINESS [None]
  - DISORIENTATION [None]
